FAERS Safety Report 10215722 (Version 1)
Quarter: 2014Q2

REPORT INFORMATION
  Report Type: Spontaneous
  Country: PL (occurrence: PL)
  Receive Date: 20140604
  Receipt Date: 20140604
  Transmission Date: 20141212
  Serious: Yes (Hospitalization)
  Sender: FDA-Public Use
  Company Number: PL-ROCHE-1406440

PATIENT
  Age: 86 Year
  Sex: Female
  Weight: 50 kg

DRUGS (1)
  1. AVASTIN [Suspect]
     Indication: MACULAR DEGENERATION
     Dosage: DOSE 0.1 G / 4 ML?LAST DOSE PRIOR TO SERIOUS ADVERSE EVENT: 29/NOV/2013?FIRST ADMINISTRATION
     Route: 050
     Dates: start: 20131129

REACTIONS (8)
  - Ocular hyperaemia [Recovered/Resolved]
  - Eye pain [Recovered/Resolved]
  - Hyphaema [Recovered/Resolved]
  - Choroidal effusion [Recovered/Resolved]
  - Injury associated with device [Recovered/Resolved]
  - Corneal opacity [Recovered/Resolved]
  - Off label use [Recovered/Resolved]
  - Off label use [Recovered/Resolved]
